FAERS Safety Report 7380538-8 (Version None)
Quarter: 2011Q1

REPORT INFORMATION
  Report Type: 
  Country: None (occurrence: None)
  Receive Date: 20110329
  Receipt Date: 20110328
  Transmission Date: 20110831
  Serious: Yes (Other)
  Sender: FDA-Public Use
  Company Number: JP-ABBOTT-11P-087-0713227-00

PATIENT
  Age: 80 Year
  Sex: Female

DRUGS (5)
  1. QUINOLONES [Concomitant]
     Indication: MYCOBACTERIAL INFECTION
  2. CLARITHROMYCIN [Suspect]
     Dates: start: 20090801
  3. CLARITHROMYCIN [Suspect]
     Indication: MYCOBACTERIAL INFECTION
     Dates: start: 19970901
  4. ETHAMBUTOL HYDROCHLORIDE [Concomitant]
     Indication: MYCOBACTERIAL INFECTION
  5. STREPTOMYCIN [Concomitant]
     Indication: MYCOBACTERIAL INFECTION
     Route: 030

REACTIONS (1)
  - PULMONARY TUBERCULOSIS [None]
